FAERS Safety Report 15919004 (Version 1)
Quarter: 2019Q1

REPORT INFORMATION
  Report Type: Report from Study
  Country: US (occurrence: US)
  Receive Date: 20190205
  Receipt Date: 20190205
  Transmission Date: 20190417
  Serious: Yes (Other)
  Sender: FDA-Public Use
  Company Number: US-JNJFOC-20190201846

PATIENT
  Age: 86 Year
  Sex: Male

DRUGS (5)
  1. CYANOCOBALAMIN. [Concomitant]
     Active Substance: CYANOCOBALAMIN
  2. IMBRUVICA [Suspect]
     Active Substance: IBRUTINIB
     Indication: LYMPHOCYTIC LEUKAEMIA
     Route: 048
     Dates: start: 20181011
  3. ALLOPURINOL. [Concomitant]
     Active Substance: ALLOPURINOL
  4. MEDROL [Concomitant]
     Active Substance: METHYLPREDNISOLONE
  5. FINASTERIDE. [Concomitant]
     Active Substance: FINASTERIDE

REACTIONS (1)
  - Urinary bladder haemorrhage [Recovering/Resolving]

NARRATIVE: CASE EVENT DATE: 20190127
